FAERS Safety Report 5269516-2 (Version None)
Quarter: 2007Q1

REPORT INFORMATION
  Report Type: 
  Country: None (occurrence: None)
  Receive Date: 20070320
  Receipt Date: 20070319
  Transmission Date: 20070707
  Serious: Yes (Hospitalization)
  Sender: FDA-Public Use
  Company Number: US-BRISTOL-MYERS SQUIBB COMPANY-13707583

PATIENT
  Age: 52 Year
  Sex: Male
  Weight: 72 kg

DRUGS (7)
  1. ERBITUX [Suspect]
     Indication: NEOPLASM MALIGNANT
     Route: 042
     Dates: start: 20070130, end: 20070130
  2. CISPLATIN [Suspect]
     Indication: NEOPLASM MALIGNANT
     Route: 042
     Dates: start: 20070130, end: 20070130
  3. ATIVAN [Concomitant]
  4. DECADRON [Concomitant]
     Route: 048
  5. METHADONE HCL [Concomitant]
     Route: 048
  6. OXYCODONE [Concomitant]
     Route: 048
  7. SENOKOT [Concomitant]

REACTIONS (5)
  - BLOOD POTASSIUM DECREASED [None]
  - DEHYDRATION [None]
  - HYPOMAGNESAEMIA [None]
  - NAUSEA [None]
  - VOMITING [None]
